FAERS Safety Report 10958387 (Version 8)
Quarter: 2015Q3

REPORT INFORMATION
  Report Type: Report from Study
  Country: US (occurrence: US)
  Receive Date: 20150326
  Receipt Date: 20150811
  Transmission Date: 20151125
  Serious: Yes (Congenital Anomaly, Other)
  Sender: FDA-Public Use
  Company Number: US-GLAXOSMITHKLINE-US2015GSK038855

PATIENT
  Age: 0 Day
  Sex: Male

DRUGS (7)
  1. ASPIRIN. [Concomitant]
     Active Substance: ASPIRIN
     Dosage: UNK
     Dates: start: 20140603
  2. BELIMUMAB [Suspect]
     Active Substance: BELIMUMAB
     Indication: SYSTEMIC LUPUS ERYTHEMATOSUS
     Dosage: 10 MG/KG, CYC
     Route: 064
     Dates: start: 20140129, end: 20140505
  3. PREDNISONE. [Concomitant]
     Active Substance: PREDNISONE
     Dosage: 4 UNK, UNK
     Dates: start: 20140101
  4. FOLATE [Concomitant]
     Active Substance: FOLATE SODIUM
     Dosage: UNK
     Dates: start: 20140409
  5. DELTASONE [Concomitant]
     Active Substance: PREDNISONE
     Dosage: 4 MG, UNK
     Dates: start: 20140530
  6. HEPARIN [Concomitant]
     Active Substance: HEPARIN SODIUM
     Dosage: UNK
     Dates: start: 20140729
  7. PREDNISONE. [Concomitant]
     Active Substance: PREDNISONE
     Dosage: 10 MG, UNK
     Dates: start: 20140930

REACTIONS (3)
  - Ventricular septal defect [Not Recovered/Not Resolved]
  - Congenital hydronephrosis [Not Recovered/Not Resolved]
  - Foetal exposure during pregnancy [Unknown]

NARRATIVE: CASE EVENT DATE: 20150113
